FAERS Safety Report 5051841-1 (Version None)
Quarter: 2006Q3

REPORT INFORMATION
  Report Type: 
  Country: None (occurrence: None)
  Receive Date: 20060713
  Receipt Date: 20060713
  Transmission Date: 20061208
  Serious: Yes (Disabling)
  Sender: FDA-Public Use
  Company Number: None

PATIENT
  Sex: Female

DRUGS (2)
  1. ZOMETA [Suspect]
     Indication: BREAST CANCER METASTATIC
     Dosage: IV  FOR LAST 2 YRS
     Route: 042
  2. FOSAMAX [Suspect]
     Dosage: PO  FOR 2 YRS PRIOR TO ZOMETA
     Route: 048

REACTIONS (1)
  - OSTEONECROSIS [None]
